FAERS Safety Report 10189472 (Version 3)
Quarter: 2014Q2

REPORT INFORMATION
  Report Type: Spontaneous
  Country: JP (occurrence: JP)
  Receive Date: 20140522
  Receipt Date: 20140605
  Transmission Date: 20141212
  Serious: Yes (Hospitalization)
  Sender: FDA-Public Use
  Company Number: JP-BAYER-2014-072836

PATIENT
  Age: 1 Year
  Sex: Male

DRUGS (3)
  1. ACETYLSALICYLIC ACID (} 100 MG) [Suspect]
     Dosage: DAILY DOSE 30 MG/KG
     Route: 048
  2. ACETYLSALICYLIC ACID (} 100 MG) [Suspect]
     Dosage: 40 MG/KG, UNK
     Route: 048
  3. IMMUNGLOBULIN [IMMUNOGLOBULIN HUMAN NORMAL] [Suspect]
     Indication: KAWASAKI^S DISEASE
     Dosage: UNK

REACTIONS (2)
  - Neutropenia [Recovering/Resolving]
  - Toxic skin eruption [None]
